FAERS Safety Report 9343038 (Version 1)
Quarter: 2013Q2

REPORT INFORMATION
  Report Type: Spontaneous
  Country: US (occurrence: US)
  Receive Date: 20130611
  Receipt Date: 20130611
  Transmission Date: 20140414
  Serious: No
  Sender: FDA-Public Use
  Company Number: US-009507513-1306USA002929

PATIENT
  Sex: Female

DRUGS (1)
  1. CLARITIN REDITABS 12HR [Suspect]
     Indication: HYPERSENSITIVITY
     Dosage: UNK, ONCE
     Route: 048
     Dates: start: 20130530

REACTIONS (1)
  - Drug ineffective [Unknown]
